FAERS Safety Report 7111577-X (Version None)
Quarter: 2010Q4

REPORT INFORMATION
  Report Type: 
  Country: None (occurrence: None)
  Receive Date: 20101118
  Receipt Date: 20100708
  Transmission Date: 20110411
  Serious: Yes (Other)
  Sender: FDA-Public Use
  Company Number: US-PFIZER INC-2010086296

PATIENT
  Sex: Female

DRUGS (18)
  1. ZYVOX [Suspect]
     Indication: ANTIBIOTIC RESISTANT STAPHYLOCOCCUS TEST POSITIVE
     Dosage: 600 MG, 2X/DAY
     Route: 048
     Dates: start: 20100701, end: 20100701
  2. ZYVOX [Suspect]
     Indication: STREPTOCOCCUS TEST POSITIVE
  3. PAXIL [Concomitant]
     Indication: MOOD SWINGS
     Dosage: 10 MG, 1X/DAY
     Route: 048
  4. LEVOTHYROXINE [Concomitant]
     Indication: THYROID DISORDER
     Dosage: UNK
  5. LASIX [Concomitant]
     Dosage: 40 MG, 1X/DAY
     Route: 048
  6. LANTUS [Concomitant]
     Indication: DIABETES MELLITUS
     Dosage: UNK
     Route: 058
  7. ISOSORBIDE [Concomitant]
     Indication: HYPERTENSION
     Dosage: UNK
  8. AMLODIPINE BESYLATE/VALSARTAN [Concomitant]
     Indication: HYPERTENSION
     Dosage: 10/160MG /DAY
     Route: 048
  9. DILANTIN [Concomitant]
     Dosage: UNK
     Route: 048
  10. ALLEGRA D 24 HOUR [Concomitant]
     Indication: HYPERSENSITIVITY
     Dosage: UNK
     Route: 048
  11. ACTOS [Concomitant]
     Indication: DIABETES MELLITUS
     Dosage: 45 MG, 1X/DAY
     Route: 048
  12. LUNESTA [Concomitant]
     Indication: SLEEP DISORDER
     Dosage: 3 MG, AS NEEDED
     Route: 048
  13. MOBIC [Concomitant]
     Indication: MYALGIA
     Dosage: UNK
     Route: 048
  14. MOBIC [Concomitant]
     Indication: NEUROPATHY PERIPHERAL
  15. NEURONTIN [Concomitant]
     Indication: NEUROPATHY PERIPHERAL
     Dosage: 600 MG, 1X/DAY
     Route: 048
  16. NOVOLIN 70/30 [Concomitant]
     Indication: DIABETES MELLITUS
     Dosage: 80 IU, 1X/DAY
     Route: 058
  17. OMEPRAZOLE [Concomitant]
     Indication: GASTROOESOPHAGEAL REFLUX DISEASE
     Dosage: UNK
     Route: 048
  18. ROBAXIN [Concomitant]
     Indication: MUSCLE RELAXANT THERAPY
     Dosage: 750 MG, 1X/DAY
     Route: 048

REACTIONS (1)
  - SEROTONIN SYNDROME [None]
